FAERS Safety Report 8678240 (Version 2)
Quarter: 2013Q4

REPORT INFORMATION
  Report Type: Report from Study
  Country: JP (occurrence: JP)
  Receive Date: 20120723
  Receipt Date: 20131107
  Transmission Date: 20140711
  Serious: Yes (Other)
  Sender: FDA-Public Use
  Company Number: JP-009507513-1207JPN002351

PATIENT
  Sex: 0

DRUGS (2)
  1. PEGINTRON [Suspect]
     Indication: CHRONIC HEPATITIS C
     Dosage: 60-150 MICROGRAM , QW
     Route: 058
  2. REBETOL [Suspect]
     Indication: CHRONIC HEPATITIS C
     Dosage: 600-1000 MILLIGRAMS, QD
     Route: 048

REACTIONS (16)
  - Alanine aminotransferase increased [Unknown]
  - Myasthenia gravis [Unknown]
  - Skin disorder [Unknown]
  - Pulmonary tuberculosis [Unknown]
  - Cerebrovascular disorder [Unknown]
  - Neurological symptom [Unknown]
  - Interstitial lung disease [Unknown]
  - Anaemia [Unknown]
  - Hyperthyroidism [Unknown]
  - Hypothyroidism [Unknown]
  - Retinopathy [Unknown]
  - Rheumatoid arthritis [Unknown]
  - Diabetes mellitus [Unknown]
  - Depressive symptom [Unknown]
  - Thrombocytopenia [Unknown]
  - Neutropenia [Unknown]
